FAERS Safety Report 8069484-4 (Version None)
Quarter: 2012Q1

REPORT INFORMATION
  Report Type: 
  Country: None (occurrence: None)
  Receive Date: 20120125
  Receipt Date: 20120116
  Transmission Date: 20120608
  Serious: Yes (Life-Threatening, Hospitalization, Other)
  Sender: FDA-Public Use
  Company Number: CA-US-EMD SERONO, INC.-7107277

PATIENT
  Sex: Female

DRUGS (2)
  1. REBIF [Suspect]
     Route: 058
     Dates: start: 20110610
  2. REBIF [Suspect]
     Indication: PRODUCT USED FOR UNKNOWN INDICATION
     Route: 058
     Dates: start: 20070116, end: 20110505

REACTIONS (10)
  - DIABETES MELLITUS [None]
  - FEMUR FRACTURE [None]
  - SKIN ULCER [None]
  - NEURALGIA [None]
  - CARDIAC FAILURE [None]
  - PNEUMONIA [None]
  - HYPERTENSION [None]
  - FALL [None]
  - RENAL FAILURE [None]
  - BLOOD POTASSIUM INCREASED [None]
